FAERS Safety Report 16038891 (Version 1)
Quarter: 2019Q1

REPORT INFORMATION
  Report Type: Spontaneous
  Country: US (occurrence: US)
  Receive Date: 20190306
  Receipt Date: 20190306
  Transmission Date: 20190418
  Serious: Yes (Other)
  Sender: FDA-Public Use
  Company Number: PHHY2019US048895

PATIENT
  Age: 29 Year
  Sex: Female

DRUGS (6)
  1. PREDNISONE. [Suspect]
     Active Substance: PREDNISONE
     Indication: SICKLE CELL DISEASE
     Route: 065
  2. PREDNISONE. [Suspect]
     Active Substance: PREDNISONE
     Indication: IMMUNOSUPPRESSANT DRUG LEVEL
  3. RITUXIMAB. [Suspect]
     Active Substance: RITUXIMAB
     Indication: IMMUNOSUPPRESSANT DRUG THERAPY
  4. BORTEZOMIB. [Suspect]
     Active Substance: BORTEZOMIB
     Indication: SICKLE CELL DISEASE
     Dosage: 4 DOSES OF 1.3 MG/M2, UNK
     Route: 065
  5. BORTEZOMIB. [Suspect]
     Active Substance: BORTEZOMIB
     Indication: IMMUNOSUPPRESSANT DRUG THERAPY
  6. RITUXIMAB. [Suspect]
     Active Substance: RITUXIMAB
     Indication: SICKLE CELL DISEASE
     Dosage: 3 DOSES OF 375 MG/M2, UNK
     Route: 065

REACTIONS (3)
  - Endocarditis bacterial [Unknown]
  - Bacteraemia [Unknown]
  - Product use in unapproved indication [Unknown]
